FAERS Safety Report 16429101 (Version 2)
Quarter: 2019Q3

REPORT INFORMATION
  Report Type: Report from Study
  Country: None (occurrence: US)
  Receive Date: 20190614
  Receipt Date: 20190821
  Transmission Date: 20191004
  Serious: Yes (Other)
  Sender: FDA-Public Use
  Company Number: US-ABBVIE-19K-163-2818903-00

PATIENT
  Sex: Female
  Weight: 88.53 kg

DRUGS (3)
  1. ATORVASTATIN [Concomitant]
     Active Substance: ATORVASTATIN
     Indication: PRODUCT USED FOR UNKNOWN INDICATION
     Dosage: HALF TABLET EACH DAY
  2. LEVOTHYROXINE. [Concomitant]
     Active Substance: LEVOTHYROXINE
     Indication: PRODUCT USED FOR UNKNOWN INDICATION
  3. HUMIRA [Suspect]
     Active Substance: ADALIMUMAB
     Indication: CROHN^S DISEASE
     Route: 058
     Dates: start: 20190308, end: 20190517

REACTIONS (6)
  - Vestibular disorder [Unknown]
  - Otitis media acute [Unknown]
  - Eustachian tube dysfunction [Unknown]
  - VIIIth nerve injury [Unknown]
  - Deafness neurosensory [Unknown]
  - Toothache [Unknown]

NARRATIVE: CASE EVENT DATE: 20190328
